FAERS Safety Report 5385255-1 (Version None)
Quarter: 2007Q3

REPORT INFORMATION
  Report Type: 
  Country: None (occurrence: None)
  Receive Date: 20070709
  Receipt Date: 20070628
  Transmission Date: 20080115
  Serious: Yes (Other)
  Sender: FDA-Public Use
  Company Number: CHPA2007US07316

PATIENT
  Age: 46 Year
  Sex: Female
  Weight: 52.2 kg

DRUGS (2)
  1. VAGISTAT-1 [Suspect]
     Indication: VULVOVAGINAL MYCOTIC INFECTION
     Dosage: 300 MG, ONCE/SINGLE, VAGINAL
     Route: 067
     Dates: start: 20070627, end: 20070627
  2. PROZAC [Concomitant]

REACTIONS (1)
  - LIP SWELLING [None]
